FAERS Safety Report 6974586-7 (Version None)
Quarter: 2010Q3

REPORT INFORMATION
  Report Type: 
  Country: None (occurrence: None)
  Receive Date: 20100909
  Receipt Date: 20080812
  Transmission Date: 20110219
  Serious: No
  Sender: FDA-Public Use
  Company Number: US-WYE-H05576208

PATIENT
  Sex: Male
  Weight: 86.26 kg

DRUGS (2)
  1. PROTONIX [Suspect]
     Indication: REFLUX LARYNGITIS
     Route: 048
     Dates: start: 20070801, end: 20080201
  2. PROTONIX [Suspect]
     Indication: GASTROOESOPHAGEAL REFLUX DISEASE
     Route: 048
     Dates: start: 20080201

REACTIONS (2)
  - DRUG INEFFECTIVE [None]
  - SALIVA ALTERED [None]
